FAERS Safety Report 19195370 (Version 1)
Quarter: 2021Q2

REPORT INFORMATION
  Report Type: Spontaneous
  Country: US (occurrence: US)
  Receive Date: 20210429
  Receipt Date: 20210429
  Transmission Date: 20210717
  Serious: Yes (Other)
  Sender: FDA-Public Use
  Company Number: None

PATIENT
  Age: 16 Year
  Sex: Female
  Weight: 78.6 kg

DRUGS (2)
  1. FERAHEME 84 MG IN 25 ML NORMAL SALINE [Concomitant]
     Dates: start: 20210415, end: 20210415
  2. FERAHEME [Suspect]
     Active Substance: FERUMOXYTOL NON-STOICHIOMETRIC MAGNETITE
     Indication: MAGNETIC RESONANCE IMAGING
     Dosage: ?          OTHER FREQUENCY:ONCE PRIOR TO MRI;?
     Route: 041
     Dates: start: 20210415, end: 20210415

REACTIONS (8)
  - Chest discomfort [None]
  - Cough [None]
  - Abdominal pain [None]
  - Erythema [None]
  - Infusion related reaction [None]
  - Vomiting [None]
  - Dyspnoea [None]
  - Flushing [None]

NARRATIVE: CASE EVENT DATE: 20210415
